FAERS Safety Report 6200715-9 (Version None)
Quarter: 2009Q2

REPORT INFORMATION
  Report Type: 
  Country: None (occurrence: None)
  Receive Date: 20090522
  Receipt Date: 20080616
  Transmission Date: 20091009
  Serious: Yes (Death, Hospitalization)
  Sender: FDA-Public Use
  Company Number: US-ALEXION-A200800076

PATIENT
  Sex: Female

DRUGS (13)
  1. SOLIRIS [Suspect]
     Indication: PAROXYSMAL NOCTURNAL HAEMOGLOBINURIA
     Dosage: 600 MG, SINGLE
     Route: 042
     Dates: start: 20080221, end: 20080221
  2. SOLIRIS [Suspect]
     Dosage: 600 MG, SINGLE
     Route: 042
     Dates: start: 20080228, end: 20080228
  3. SOLIRIS [Suspect]
     Dosage: 600 MG, SINGLE
     Route: 042
     Dates: start: 20080306, end: 20080306
  4. SOLIRIS [Suspect]
     Dosage: 600 MG, SINGLE
     Route: 042
     Dates: start: 20080313, end: 20080313
  5. INSULIN [Concomitant]
     Indication: DIABETES MELLITUS
     Dosage: UNK, QD
     Route: 058
  6. NORVASC [Concomitant]
     Indication: HYPERTENSION
     Dosage: 10 MG, QD
     Route: 048
  7. FOLIC ACID [Concomitant]
     Indication: PAROXYSMAL NOCTURNAL HAEMOGLOBINURIA
     Dosage: 5 MG, QD
     Route: 048
  8. CALCIUM CALTRATE [Concomitant]
     Dosage: 1500 MG, QD
     Route: 048
  9. VITAMIN B6 [Concomitant]
     Dosage: 400 UT, QD
     Route: 048
  10. VITAMIN B12  /00056201/ [Concomitant]
     Dosage: 200 UG, QD
     Route: 048
  11. COLESTYRAMIN [Concomitant]
     Dosage: UNK, QD
  12. LASIX [Concomitant]
     Dosage: 40 MG, QD
     Route: 048
  13. CYCLOSPORINE [Concomitant]
     Dosage: 75 MG, BID
     Route: 048

REACTIONS (3)
  - BACTERAEMIA [None]
  - FEBRILE NEUTROPENIA [None]
  - PANCYTOPENIA [None]
